FAERS Safety Report 14253375 (Version 6)
Quarter: 2019Q1

REPORT INFORMATION
  Report Type: Report from Study
  Country: AT (occurrence: AT)
  Receive Date: 20171205
  Receipt Date: 20190217
  Transmission Date: 20190417
  Serious: Yes (Life-Threatening, Hospitalization, Disabling)
  Sender: FDA-Public Use
  Company Number: AT-AMGEN-AUTCT2017180542

PATIENT
  Age: 61 Year
  Sex: Male
  Weight: 80 kg

DRUGS (8)
  1. NIFTEN [Concomitant]
     Indication: HYPERTENSION
     Dosage: 1 DF, (1-0-1)
  2. CANDESARTAN CILEXETIL AND HYDROCHLOROTHIAZIDE [Concomitant]
     Active Substance: CANDESARTAN CILEXETIL\HYDROCHLOROTHIAZIDE
  3. ETANERCEPT [Suspect]
     Active Substance: ETANERCEPT
     Indication: PSORIATIC ARTHROPATHY
     Dosage: 25 MG, QWK
     Route: 058
     Dates: start: 200410, end: 201606
  4. CANDESARTAN CILEXETIL AND HYDROCHLOROTHIAZIDE [Concomitant]
     Active Substance: CANDESARTAN CILEXETIL\HYDROCHLOROTHIAZIDE
     Indication: HYPERTENSION
     Dosage: UNK, QD
  5. PANTOPRAZOL [Concomitant]
     Active Substance: PANTOPRAZOLE SODIUM
     Dosage: UNK
  6. APREDNISLON [Concomitant]
     Active Substance: PREDNISOLONE
     Dosage: UNK
  7. NIFTEN [Concomitant]
  8. ETANERCEPT [Suspect]
     Active Substance: ETANERCEPT
     Dosage: 25 MG, QWK
     Route: 058
     Dates: start: 201609, end: 201706

REACTIONS (3)
  - Metastases to central nervous system [Recovered/Resolved with Sequelae]
  - Clear cell renal cell carcinoma [Recovered/Resolved with Sequelae]
  - Renal cell carcinoma recurrent [Recovered/Resolved with Sequelae]

NARRATIVE: CASE EVENT DATE: 20160712
